FAERS Safety Report 6316626-4 (Version None)
Quarter: 2009Q3

REPORT INFORMATION
  Report Type: 
  Country: None (occurrence: None)
  Receive Date: 20090820
  Receipt Date: 20090813
  Transmission Date: 20100115
  Serious: Yes (Hospitalization)
  Sender: FDA-Public Use
  Company Number: FR-TEVA-206148USA

PATIENT
  Age: 57 Year
  Sex: Female

DRUGS (12)
  1. BISELECT [Suspect]
     Route: 048
  2. METFORMIN HCL [Suspect]
     Route: 048
  3. ACETYLSALICYLATE LYSINE [Suspect]
     Route: 048
  4. CLOPIDOGREL [Suspect]
     Route: 048
  5. ATORVASTATIN CALCIUM [Suspect]
     Route: 048
  6. ESOMEPRAZOLE MAGNESIUM [Suspect]
     Route: 048
  7. FUROSEMIDE [Suspect]
     Route: 048
  8. GLIBENCLAMIDE [Suspect]
     Route: 048
  9. PAROXETINE HCL [Suspect]
     Route: 048
  10. PERINDOPRIL [Suspect]
     Dosage: ONE DOSAGE FORM
     Route: 048
  11. BROMAZEPAM [Suspect]
     Route: 048
  12. NICOTINE [Suspect]
     Route: 062

REACTIONS (1)
  - TOXIC SKIN ERUPTION [None]
